FAERS Safety Report 21005355 (Version 1)
Quarter: 2022Q2

REPORT INFORMATION
  Report Type: Spontaneous
  Country: FR (occurrence: FR)
  Receive Date: 20220624
  Receipt Date: 20220624
  Transmission Date: 20220720
  Serious: Yes (Other)
  Sender: FDA-Public Use
  Company Number: None

PATIENT
  Age: 65 Year
  Sex: Male
  Weight: 97 kg

DRUGS (4)
  1. CLOPIDOGREL [Interacting]
     Active Substance: CLOPIDOGREL BISULFATE
     Indication: Thrombosis
     Route: 048
     Dates: start: 20220324, end: 20220324
  2. UROKINASE [Interacting]
     Active Substance: UROKINASE
     Indication: Thrombolysis
     Dosage: SEE COMMENT
     Route: 013
     Dates: start: 20220324, end: 20220325
  3. HEPARIN SODIUM [Interacting]
     Active Substance: HEPARIN SODIUM
     Indication: Thrombosis
     Route: 042
     Dates: start: 20220323, end: 20220325
  4. KARDEGIC [Interacting]
     Active Substance: ASPIRIN DL-LYSINE
     Indication: Cardiovascular event prophylaxis
     Dosage: POWDER FOR ORAL SOLUTION IN SACHET-DOSE, STRENGTH:75 MG
     Route: 048

REACTIONS (3)
  - Haemorrhage [Recovered/Resolved]
  - Drug interaction [Unknown]
  - Product availability issue [Unknown]

NARRATIVE: CASE EVENT DATE: 20220325
